FAERS Safety Report 10761318 (Version 3)
Quarter: 2015Q2

REPORT INFORMATION
  Report Type: Spontaneous
  Country: US (occurrence: US)
  Receive Date: 20150204
  Receipt Date: 20150421
  Transmission Date: 20150821
  Serious: No
  Sender: FDA-Public Use
  Company Number: US-PFIZER INC-2015043114

PATIENT
  Age: 68 Year
  Sex: Male

DRUGS (1)
  1. TOVIAZ [Suspect]
     Active Substance: FESOTERODINE FUMARATE
     Indication: BLADDER DISORDER
     Dosage: 8 MG, UNK

REACTIONS (4)
  - Rhinorrhoea [Recovered/Resolved]
  - Sinus disorder [Recovered/Resolved]
  - Eye pruritus [Recovered/Resolved]
  - Sneezing [Recovered/Resolved]
